FAERS Safety Report 6137353-2 (Version None)
Quarter: 2009Q1

REPORT INFORMATION
  Report Type: 
  Country: None (occurrence: None)
  Receive Date: 20090330
  Receipt Date: 20090326
  Transmission Date: 20090719
  Serious: Yes (Death)
  Sender: FDA-Public Use
  Company Number: CA-B.I. PHARMACEUTICALS,INC./RIDGEFIELD-2009-CN-00237CN

PATIENT
  Sex: Female

DRUGS (4)
  1. CATAPRES [Suspect]
     Indication: PAIN MANAGEMENT
     Dosage: 300MCG
     Route: 037
  2. INTRATHECAL INFUSION [Concomitant]
     Indication: PAIN MANAGEMENT
     Route: 037
     Dates: start: 20090109, end: 20090320
  3. MORPHINE [Concomitant]
     Indication: PAIN MANAGEMENT
     Dosage: 15MG
     Route: 037
  4. BUPIVACAINE [Concomitant]
     Indication: PAIN MANAGEMENT
     Dosage: 15MG
     Route: 037

REACTIONS (1)
  - DEATH [None]
